FAERS Safety Report 13901927 (Version 1)
Quarter: 2017Q3

REPORT INFORMATION
  Report Type: Spontaneous
  Country: US (occurrence: US)
  Receive Date: 20170824
  Receipt Date: 20170824
  Transmission Date: 20171127
  Serious: No
  Sender: FDA-Public Use
  Company Number: US-ROCHE-1129686

PATIENT
  Sex: Female

DRUGS (3)
  1. HERCEPTIN [Suspect]
     Active Substance: TRASTUZUMAB
     Indication: BREAST CANCER
     Dosage: LOADING DOSE
     Route: 065
     Dates: start: 19990430
  2. HERCEPTIN [Suspect]
     Active Substance: TRASTUZUMAB
     Dosage: MAINTAINANCE DOSE
     Route: 065
     Dates: start: 19990430
  3. TAXOL [Concomitant]
     Active Substance: PACLITAXEL

REACTIONS (6)
  - Chest discomfort [Unknown]
  - Rash [Unknown]
  - Anxiety [Unknown]
  - Chills [Unknown]
  - Erythema [Unknown]
  - Flushing [Recovered/Resolved]
